FAERS Safety Report 26148185 (Version 1)
Quarter: 2025Q4

REPORT INFORMATION
  Report Type: Spontaneous
  Country: TR (occurrence: TR)
  Receive Date: 20251212
  Receipt Date: 20251212
  Transmission Date: 20260117
  Serious: Yes (Other)
  Sender: ROCHE
  Company Number: TR-ROCHE-10000452225

PATIENT
  Sex: Female

DRUGS (1)
  1. KADCYLA [Suspect]
     Active Substance: ADO-TRASTUZUMAB EMTANSINE
     Indication: Product used for unknown indication

REACTIONS (5)
  - Eye contusion [Unknown]
  - Hypoaesthesia [Unknown]
  - Angina pectoris [Unknown]
  - Dyspnoea [Unknown]
  - Cardiac disorder [Unknown]
